FAERS Safety Report 5341761-7 (Version None)
Quarter: 2007Q2

REPORT INFORMATION
  Report Type: 
  Country: None (occurrence: None)
  Receive Date: 20070529
  Receipt Date: 20070529
  Transmission Date: 20071010
  Serious: Yes (Life-Threatening)
  Sender: FDA-Public Use
  Company Number: None

PATIENT
  Age: 75 Year
  Sex: Female
  Weight: 136.0791 kg

DRUGS (1)
  1. ACTOS [Suspect]
     Indication: DIABETES MELLITUS NON-INSULIN-DEPENDENT
     Dates: start: 20061001, end: 20070522

REACTIONS (4)
  - CARDIAC FAILURE [None]
  - CORONARY ARTERY BYPASS [None]
  - OEDEMA PERIPHERAL [None]
  - PULMONARY OEDEMA [None]
